FAERS Safety Report 11864438 (Version 1)
Quarter: 2015Q4

REPORT INFORMATION
  Report Type: Spontaneous
  Country: US (occurrence: None)
  Receive Date: 20151223
  Receipt Date: 20151223
  Transmission Date: 20160305
  Serious: Yes (Hospitalization)
  Sender: FDA-Public Use
  Company Number: None

PATIENT
  Age: 72 Year
  Sex: Male
  Weight: 62 kg

DRUGS (3)
  1. ASA 81MG QD X 28 DAYS PO [Suspect]
     Active Substance: ASPIRIN
     Indication: ANTIPLATELET THERAPY
     Dosage: QD X 28 DAYS
     Route: 048
     Dates: end: 20151130
  2. ZOCOR [Suspect]
     Active Substance: SIMVASTATIN
     Indication: ANTIPLATELET THERAPY
     Dosage: QD X 28 DAY
     Route: 048
     Dates: end: 20151201
  3. NEURONTIN [Concomitant]
     Active Substance: GABAPENTIN

REACTIONS (4)
  - Infection [None]
  - Lung infection [None]
  - Toxicity to various agents [None]
  - Pneumonia [None]

NARRATIVE: CASE EVENT DATE: 20151122
